FAERS Safety Report 10244218 (Version 1)
Quarter: 2014Q1

REPORT INFORMATION
  Report Type: Spontaneous
  Country: US (occurrence: None)
  Receive Date: 20140306
  Receipt Date: 20140306
  Transmission Date: 20141002
  Serious: Yes (Other)
  Sender: FDA-Public Use
  Company Number: 163-21880-13052628

PATIENT
  Age: 74 Year
  Sex: Female

DRUGS (12)
  1. REVLIMID (LENALIDOMIDE) (25 MILLIGRAM, CAPSULES) [Suspect]
     Indication: PLASMA CELL MYELOMA
     Route: 048
     Dates: start: 200902
  2. DECADRON (DEXAMETHASONE) [Concomitant]
  3. ASPIRIN (ACETYLSALICYLIC ACID) [Concomitant]
  4. ATENOLOL (ATENOLOL) [Concomitant]
  5. DEXILANT (DEXLANSOPRAZOLE) [Concomitant]
  6. HYDROCHLOROTHIAZIDE (HYDROCHLOROTHIAZIDE) [Concomitant]
  7. LIPITOR (ATORVASTATIN) [Concomitant]
  8. NITROLINGUAL (GLYCERYL TRINITRATE) [Concomitant]
  9. POTASSIUM (POTASSIUM) [Concomitant]
  10. SLIDING SCALE INSULIN (INSULIN) [Concomitant]
  11. AMOXICLLIN-POT CLAVULANATE (CLAVULIN) [Concomitant]
  12. BACTRIM DS (BACTRIM) [Concomitant]

REACTIONS (2)
  - Furuncle [None]
  - Acne [None]
